FAERS Safety Report 8384799-8 (Version None)
Quarter: 2012Q2

REPORT INFORMATION
  Report Type: 
  Country: None (occurrence: None)
  Receive Date: 20120524
  Receipt Date: 20120521
  Transmission Date: 20120825
  Serious: Yes (Other)
  Sender: FDA-Public Use
  Company Number: BR-ROCHE-670654

PATIENT
  Sex: Female
  Weight: 65 kg

DRUGS (36)
  1. GALVUS [Concomitant]
  2. ATACAND [Concomitant]
     Indication: HYPERTENSION
  3. ASPIRIN [Concomitant]
  4. ASPIRIN [Concomitant]
     Dosage: DRUG RPTD AS ASPIRINA PREVENT
  5. ZETIA [Concomitant]
  6. BONIVA [Concomitant]
  7. LYRICA [Concomitant]
  8. ACTEMRA [Suspect]
     Indication: RHEUMATOID ARTHRITIS
     Dates: start: 20091025, end: 20101001
  9. DEFLANIL [Concomitant]
     Indication: RHEUMATOID ARTHRITIS
  10. CELEBREX [Concomitant]
  11. NEXIUM [Concomitant]
     Indication: PROPHYLAXIS AGAINST GASTROINTESTINAL ULCER
  12. ACETAMINOPHEN AND TRAMADOL HCL [Concomitant]
     Dosage: DRUG REPORTED:PARATRAM
  13. AMARYL [Concomitant]
  14. ARTRODAR [Concomitant]
  15. ACTEMRA [Suspect]
  16. ACTEMRA [Suspect]
  17. CALCIUM [Concomitant]
  18. ARAVA [Concomitant]
     Indication: RHEUMATOID ARTHRITIS
  19. BONIVA [Concomitant]
  20. MINOCYCLINE HCL [Concomitant]
     Indication: RHEUMATOID ARTHRITIS
     Dosage: DRUG RPTD: DENACEN
  21. DAFORIN [Concomitant]
  22. CALCORT [Concomitant]
     Dosage: DOSE REDUCED FROM 12 MG TO 06 MG
  23. DAFORIN [Concomitant]
  24. EZETIMIBE [Concomitant]
  25. MABTHERA [Suspect]
     Route: 042
     Dates: start: 20100917, end: 20101001
  26. CRESTOR [Concomitant]
     Indication: BLOOD CHOLESTEROL INCREASED
  27. CALCORT [Concomitant]
     Dosage: DOSE REDUCED FROM 12 MG TO 06 MG
  28. CRESTOR [Concomitant]
  29. INDAPAMIDE [Concomitant]
     Indication: HYPERTENSION
  30. PLAVIX [Concomitant]
  31. MABTHERA [Suspect]
     Indication: RHEUMATOID ARTHRITIS
     Dosage: DOSE: 100MG/10ML, FORM: INFUSION
     Route: 042
     Dates: start: 20091025, end: 20091109
  32. GALVUS [Concomitant]
     Indication: DIABETES MELLITUS
     Dosage: NAME RPTD AS ^GALVUS MET^
  33. CORTISONE ACETATE [Concomitant]
  34. NAPRIX [Concomitant]
     Indication: HYPERTENSION
  35. LOXONIN [Concomitant]
  36. CALCIUM CARBONATE [Concomitant]

REACTIONS (20)
  - BLOOD GLUCOSE INCREASED [None]
  - INFLUENZA [None]
  - SWELLING [None]
  - SYNOVIAL CYST [None]
  - ARTERIOSCLEROSIS CORONARY ARTERY [None]
  - RHEUMATOID ARTHRITIS [None]
  - HYPERSENSITIVITY [None]
  - OSTEOARTHRITIS [None]
  - TENDON RUPTURE [None]
  - THROAT IRRITATION [None]
  - SOMNOLENCE [None]
  - PAIN [None]
  - DRUG INEFFECTIVE [None]
  - ASTHENIA [None]
  - CYST [None]
  - GAIT DISTURBANCE [None]
  - JOINT SWELLING [None]
  - RED BLOOD CELL SEDIMENTATION RATE INCREASED [None]
  - PAIN IN EXTREMITY [None]
  - THERAPEUTIC RESPONSE DECREASED [None]
